FAERS Safety Report 25097882 (Version 1)
Quarter: 2025Q1

REPORT INFORMATION
  Report Type: Other
  Country: FR (occurrence: FR)
  Receive Date: 20250320
  Receipt Date: 20250320
  Transmission Date: 20250408
  Serious: Yes (Life-Threatening, Other)
  Sender: SIEMENS
  Company Number: None

PATIENT
  Age: 71 Year
  Sex: Female
  Weight: 68 kg

DRUGS (1)
  1. FLUDEOXYGLUCOSE [Suspect]
     Active Substance: FLUDEOXYGLUCOSE
     Indication: Scan with contrast
     Route: 042
     Dates: start: 20241223, end: 20241223

REACTIONS (1)
  - Cardio-respiratory arrest [Unknown]

NARRATIVE: CASE EVENT DATE: 20241223
